FAERS Safety Report 4888926-6 (Version None)
Quarter: 2005Q4

REPORT INFORMATION
  Report Type: 
  Country: None (occurrence: None)
  Receive Date: 20051216
  Receipt Date: 20050715
  Transmission Date: 20060501
  Serious: No
  Sender: FDA-Public Use
  Company Number: USA0507102989

PATIENT
  Age: 84 Year
  Sex: Male
  Weight: 82 kg

DRUGS (9)
  1. CIALIS [Suspect]
     Indication: ERECTILE DYSFUNCTION
     Dosage: 10 MG
     Dates: start: 20050701
  2. CIPROFLOXACIN [Concomitant]
  3. FOSAMAX [Concomitant]
  4. FELDENE [Concomitant]
  5. ALLEGRA [Concomitant]
  6. NASONEX [Concomitant]
  7. ASPIRIN [Concomitant]
  8. CALCIUM GLUCONATE [Concomitant]
  9. VITAMIN E [Concomitant]

REACTIONS (1)
  - DRUG INEFFECTIVE [None]
